FAERS Safety Report 6508747-8 (Version None)
Quarter: 2009Q4

REPORT INFORMATION
  Report Type: 
  Country: None (occurrence: None)
  Receive Date: 20091221
  Receipt Date: 20091130
  Transmission Date: 20100525
  Serious: Yes (Other)
  Sender: FDA-Public Use
  Company Number: PHHY2009JP53713

PATIENT

DRUGS (4)
  1. NEORAL [Suspect]
     Indication: LIVER TRANSPLANT
     Dosage: UNK
     Route: 048
  2. SIMULECT [Suspect]
     Indication: LIVER TRANSPLANT
     Dosage: UNK
     Route: 042
  3. CELLCEPT [Concomitant]
     Indication: LIVER TRANSPLANT
     Route: 048
  4. PREDNISOLONE [Concomitant]

REACTIONS (2)
  - INFECTION [None]
  - JAUNDICE [None]
